FAERS Safety Report 21055077 (Version 1)
Quarter: 2022Q3

REPORT INFORMATION
  Report Type: Spontaneous
  Country: US (occurrence: US)
  Receive Date: 20220707
  Receipt Date: 20220707
  Transmission Date: 20221026
  Serious: No
  Sender: FDA-Public Use
  Company Number: US-GRUNENTHAL-2022-103101

PATIENT
  Age: 61 Year
  Sex: Female

DRUGS (1)
  1. QUTENZA [Suspect]
     Active Substance: CAPSAICIN
     Indication: Diabetic neuropathy
     Dosage: 2 DOSAGE FORM
     Route: 061
     Dates: start: 20220208

REACTIONS (3)
  - Application site pain [Unknown]
  - Application site pain [Unknown]
  - Application site swelling [Unknown]
